FAERS Safety Report 12766851 (Version 1)
Quarter: 2016Q3

REPORT INFORMATION
  Report Type: Spontaneous
  Country: US (occurrence: US)
  Receive Date: 20160921
  Receipt Date: 20160921
  Transmission Date: 20161109
  Serious: No
  Sender: FDA-Public Use
  Company Number: US-ASTRAZENECA-2016SE97018

PATIENT
  Age: 1022 Month
  Sex: Male
  Weight: 63.5 kg

DRUGS (1)
  1. SYMBICORT [Suspect]
     Active Substance: BUDESONIDE\FORMOTEROL FUMARATE DIHYDRATE
     Indication: DYSPNOEA
     Dosage: 160/4.5 MCG, 2 PUFFS IN THE MORNING AND EVENING
     Route: 055
     Dates: start: 201609

REACTIONS (3)
  - Off label use [Unknown]
  - Dizziness [Unknown]
  - Product use issue [Unknown]

NARRATIVE: CASE EVENT DATE: 201609
